FAERS Safety Report 10020657 (Version 3)
Quarter: 2013Q4

REPORT INFORMATION
  Report Type: Spontaneous
  Country: US (occurrence: None)
  Receive Date: 20131122
  Receipt Date: 20131224
  Transmission Date: 20140711
  Serious: Yes (Death, Hospitalization)
  Sender: FDA-Public Use
  Company Number: US-000859

PATIENT
  Sex: Female

DRUGS (8)
  1. GATTEX [Suspect]
     Indication: SHORT-BOWEL SYNDROME
     Dosage: STRE/VOLUM :0.27 ML FREQUENCY: ONCE A DAY SC
     Route: 058
     Dates: start: 20131001, end: 20131109
  2. VICODIN [Suspect]
     Indication: SPINAL PAIN
  3. AMBIEN [Concomitant]
  4. SOLUTIONS FOR PARENTERAL NUTRITION [Concomitant]
  5. VITAMIN D NOS [Concomitant]
  6. CITALOPRAM [Concomitant]
  7. CYCLOBENZAPRINE [Concomitant]
  8. CALCIUM [Concomitant]

REACTIONS (7)
  - Death [None]
  - Unresponsive to stimuli [None]
  - Diarrhoea [None]
  - Weight decreased [None]
  - Abdominal pain [None]
  - Asthenia [None]
  - Embolism [None]
